FAERS Safety Report 21493205 (Version 1)
Quarter: 2022Q4

REPORT INFORMATION
  Report Type: Spontaneous
  Country: US (occurrence: US)
  Receive Date: 20221021
  Receipt Date: 20221021
  Transmission Date: 20230112
  Serious: Yes (Life-Threatening, Hospitalization, Other)
  Sender: FDA-Public Use
  Company Number: US-MLMSERVICE-20221010-3847217-1

PATIENT
  Age: 31 Year
  Sex: Female

DRUGS (1)
  1. ASPIRIN [Suspect]
     Active Substance: ASPIRIN
     Dosage: EMPTY BOTTLE

REACTIONS (6)
  - Toxicity to various agents [Recovered/Resolved]
  - Respiratory alkalosis [Recovered/Resolved]
  - Respiratory distress [Recovered/Resolved]
  - Metabolic acidosis [Recovered/Resolved]
  - Intentional overdose [Recovered/Resolved]
  - Mental status changes [Recovered/Resolved]
